FAERS Safety Report 7439968-8 (Version None)
Quarter: 2011Q2

REPORT INFORMATION
  Report Type: 
  Country: None (occurrence: None)
  Receive Date: 20110427
  Receipt Date: 20101115
  Transmission Date: 20111010
  Serious: Yes (Other)
  Sender: FDA-Public Use
  Company Number: US-BAYER-201042045NA

PATIENT
  Age: 83 Year
  Sex: Male

DRUGS (1)
  1. LEUKINE [Suspect]
     Indication: PRODUCT USED FOR UNKNOWN INDICATION
     Dosage: 250 ?G, UNK
     Route: 058
     Dates: start: 20060215, end: 20060712

REACTIONS (4)
  - SYNCOPE [None]
  - DIZZINESS [None]
  - BONE PAIN [None]
  - MYALGIA [None]
